FAERS Safety Report 4450365-X (Version None)
Quarter: 2004Q3

REPORT INFORMATION
  Report Type: 
  Country: None (occurrence: None)
  Receive Date: 20040915
  Receipt Date: 20040909
  Transmission Date: 20050211
  Serious: Yes (Hospitalization)
  Sender: FDA-Public Use
  Company Number: US-MERCK-0409USA00595

PATIENT
  Age: 64 Year
  Sex: Female

DRUGS (12)
  1. [THERAPY UNSPECIFIED] [Concomitant]
     Route: 055
  2. NORVASC [Concomitant]
     Route: 065
  3. BUMEX [Concomitant]
     Route: 065
  4. DECADRON [Suspect]
     Indication: MULTIPLE MYELOMA
     Route: 065
     Dates: start: 20040202, end: 20040401
  5. DIGOXIN [Concomitant]
     Route: 065
  6. COLACE [Concomitant]
     Route: 065
  7. IMDUR [Concomitant]
     Route: 065
  8. SYNTHROID [Concomitant]
     Route: 065
  9. PAXIL [Concomitant]
     Route: 065
  10. ZANTAC [Concomitant]
     Route: 065
  11. THALOMID [Suspect]
     Indication: MULTIPLE MYELOMA
     Route: 048
     Dates: start: 20040325, end: 20040401
  12. COUMADIN [Concomitant]
     Route: 065

REACTIONS (2)
  - DRUG INTOLERANCE [None]
  - PSYCHOTIC DISORDER [None]
